FAERS Safety Report 23165879 (Version 1)
Quarter: 2023Q4

REPORT INFORMATION
  Report Type: Spontaneous
  Country: CA (occurrence: CA)
  Receive Date: 20231109
  Receipt Date: 20231109
  Transmission Date: 20240110
  Serious: Yes (Death)
  Sender: FDA-Public Use
  Company Number: CA-PFIZER INC-202300358034

PATIENT
  Age: 28 Year
  Sex: Male

DRUGS (5)
  1. ATIVAN [Suspect]
     Active Substance: LORAZEPAM
     Indication: Agitation
     Dosage: 5 MG
     Route: 042
  2. CITALOPRAM [Concomitant]
     Active Substance: CITALOPRAM HYDROBROMIDE
  3. QUETIAPINE [Concomitant]
     Active Substance: QUETIAPINE
  4. SYNTHROID [Concomitant]
     Active Substance: LEVOTHYROXINE SODIUM
  5. TOPAMAX [Concomitant]
     Active Substance: TOPIRAMATE

REACTIONS (10)
  - Accidental death [Fatal]
  - Accidental overdose [Fatal]
  - Coma [Fatal]
  - Heart rate increased [Fatal]
  - Incorrect dose administered [Fatal]
  - Respiratory distress [Fatal]
  - Tachypnoea [Fatal]
  - Unresponsive to stimuli [Fatal]
  - Use of accessory respiratory muscles [Fatal]
  - Off label use [Unknown]
